FAERS Safety Report 4993422-1 (Version None)
Quarter: 2006Q2

REPORT INFORMATION
  Report Type: 
  Country: None (occurrence: None)
  Receive Date: 20060505
  Receipt Date: 20060418
  Transmission Date: 20061013
  Serious: Yes (Hospitalization)
  Sender: FDA-Public Use
  Company Number: CH-BRISTOL-MYERS SQUIBB COMPANY-13353842

PATIENT
  Age: 77 Year
  Sex: Male

DRUGS (7)
  1. GLUCOVANCE [Suspect]
     Indication: DIABETES MELLITUS NON-INSULIN-DEPENDENT
     Route: 048
     Dates: end: 20060303
  2. FOSITEN [Concomitant]
     Route: 048
  3. ASPIRIN [Concomitant]
     Route: 048
  4. EUTHYROX [Concomitant]
     Route: 048
  5. NITROLINGUAL [Concomitant]
     Route: 048
  6. TENORMIN [Concomitant]
     Route: 048
  7. PLAVIX [Concomitant]
     Route: 048

REACTIONS (1)
  - HEPATITIS [None]
